FAERS Safety Report 5603831-5 (Version None)
Quarter: 2008Q1

REPORT INFORMATION
  Report Type: 
  Country: None (occurrence: None)
  Receive Date: 20080123
  Receipt Date: 20080121
  Transmission Date: 20080703
  Serious: Yes (Hospitalization, Other)
  Sender: FDA-Public Use
  Company Number: 2007SP023319

PATIENT
  Age: 38 Year
  Sex: Female

DRUGS (2)
  1. PEG-INTRON [Suspect]
     Indication: HEPATITIS C
     Dosage: ;SC
     Route: 058
     Dates: start: 20050101, end: 20060101
  2. RIBAVIRIN [Suspect]
     Indication: HEPATITIS C
     Dosage: ; PO
     Route: 048
     Dates: start: 20050101, end: 20060101

REACTIONS (3)
  - CHOLELITHIASIS [None]
  - PROCEDURAL COMPLICATION [None]
  - WHITE BLOOD CELL COUNT DECREASED [None]
